FAERS Safety Report 11852753 (Version 1)
Quarter: 2015Q4

REPORT INFORMATION
  Report Type: Spontaneous
  Country: US (occurrence: US)
  Receive Date: 20151218
  Receipt Date: 20151218
  Transmission Date: 20160305
  Serious: Yes (Death, Hospitalization)
  Sender: FDA-Public Use
  Company Number: US-PFIZER INC-2015450578

PATIENT
  Age: 12 Year
  Sex: Male

DRUGS (6)
  1. METHYLPREDNISOLONE. [Concomitant]
     Active Substance: METHYLPREDNISOLONE
     Indication: STATUS ASTHMATICUS
  2. ARGININE HCL [Suspect]
     Active Substance: ARGININE HYDROCHLORIDE
     Indication: CSF PRESSURE
     Dosage: UNK
  3. SODIUM PHENYLACETATE [Suspect]
     Active Substance: SODIUM PHENYLACETATE
     Indication: CSF PRESSURE
     Dosage: UNK
  4. SODIUM BENZOATE [Suspect]
     Active Substance: SODIUM BENZOATE
     Indication: CSF PRESSURE
     Dosage: UNK
  5. HALOPERIDOL. [Concomitant]
     Active Substance: HALOPERIDOL
     Indication: MENTAL STATUS CHANGES
  6. ALBUTEROL. [Concomitant]
     Active Substance: ALBUTEROL
     Indication: STATUS ASTHMATICUS
     Dosage: UNK

REACTIONS (1)
  - Drug ineffective for unapproved indication [Fatal]
